FAERS Safety Report 5457039-7 (Version None)
Quarter: 2007Q3

REPORT INFORMATION
  Report Type: 
  Country: None (occurrence: None)
  Receive Date: 20070918
  Receipt Date: 20070228
  Transmission Date: 20080115
  Serious: Yes (Disabling)
  Sender: FDA-Public Use
  Company Number: US-ASTRAZENECA-2006UW27841

PATIENT
  Age: 49 Year
  Sex: Female
  Weight: 86.4 kg

DRUGS (2)
  1. SEROQUEL [Suspect]
     Dosage: 50 TO 75 MG
     Route: 048
     Dates: start: 20020101, end: 20060101
  2. OTHER PSYCHIATRIC MEDICATION [Concomitant]
     Dates: start: 20000101

REACTIONS (1)
  - DIABETES MELLITUS [None]
